FAERS Safety Report 18652635 (Version 1)
Quarter: 2020Q4

REPORT INFORMATION
  Report Type: Spontaneous
  Country: US (occurrence: US)
  Receive Date: 20201222
  Receipt Date: 20201222
  Transmission Date: 20210114
  Serious: Yes (Other)
  Sender: FDA-Public Use
  Company Number: US-PURDUE-USA-2020-0179534

PATIENT
  Sex: Female

DRUGS (2)
  1. OXYCONTIN [Suspect]
     Active Substance: OXYCODONE HYDROCHLORIDE
     Indication: LOWER LIMB FRACTURE
     Dosage: UNK
     Route: 048
     Dates: end: 2019
  2. HYDROCODONE BITARTRATE (SIMILAR TO NDA 206627) [Suspect]
     Active Substance: HYDROCODONE BITARTRATE
     Indication: LIGAMENT RUPTURE
     Dosage: UNK
     Route: 065
     Dates: start: 2015, end: 2019

REACTIONS (4)
  - Drug dependence [Unknown]
  - Drug abuse [Unknown]
  - Lower limb fracture [Unknown]
  - Illness [Unknown]
